FAERS Safety Report 7516909-6 (Version None)
Quarter: 2011Q2

REPORT INFORMATION
  Report Type: 
  Country: None (occurrence: None)
  Receive Date: 20110601
  Receipt Date: 20110518
  Transmission Date: 20111010
  Serious: Yes (Hospitalization, Other)
  Sender: FDA-Public Use
  Company Number: JP-CELGENEUS-TAJPN-10-0770

PATIENT
  Sex: Female
  Weight: 55 kg

DRUGS (6)
  1. ALOXI [Concomitant]
     Route: 065
     Dates: start: 20101202, end: 20110106
  2. EMEND [Concomitant]
     Route: 048
     Dates: start: 20110106, end: 20110108
  3. ABRAXANE [Suspect]
     Indication: BREAST CANCER METASTATIC
     Dosage: 380 MILLIGRAM
     Route: 051
     Dates: start: 20101202, end: 20110106
  4. DEXART [Concomitant]
     Route: 065
     Dates: start: 20101202, end: 20110106
  5. DECADRON [Concomitant]
     Route: 048
     Dates: start: 20110107, end: 20110109
  6. ABRAXANE [Suspect]
     Dosage: 320 MILLIGRAM
     Route: 051
     Dates: start: 20110106, end: 20110106

REACTIONS (3)
  - NEUTROPHIL COUNT DECREASED [None]
  - DECREASED APPETITE [None]
  - WHITE BLOOD CELL COUNT DECREASED [None]
